FAERS Safety Report 20592799 (Version 1)
Quarter: 2022Q1

REPORT INFORMATION
  Report Type: Other
  Country: GB (occurrence: GB)
  Receive Date: 20220315
  Receipt Date: 20220315
  Transmission Date: 20220424
  Serious: Yes (Hospitalization)
  Sender: FDA-Public Use
  Company Number: GB-STRIDES ARCOLAB LIMITED-2022SP002485

PATIENT

DRUGS (2)
  1. DICLOFENAC [Suspect]
     Active Substance: DICLOFENAC
     Indication: Endoscopy
     Dosage: UNK
     Route: 065
  2. CEFUROXIME [Suspect]
     Active Substance: CEFUROXIME
     Indication: Endoscopy
     Dosage: UNK
     Route: 065

REACTIONS (5)
  - Hypoxia [Unknown]
  - Chronic obstructive pulmonary disease [Unknown]
  - Bronchospasm [Recovered/Resolved]
  - Anaphylactic reaction [Unknown]
  - Off label use [Unknown]
